FAERS Safety Report 6925141-6 (Version None)
Quarter: 2010Q3

REPORT INFORMATION
  Report Type: 
  Country: None (occurrence: None)
  Receive Date: 20100811
  Receipt Date: 20100803
  Transmission Date: 20110219
  Serious: Yes (Other)
  Sender: FDA-Public Use
  Company Number: 2010MA001439

PATIENT
  Age: 32 Year
  Sex: Female

DRUGS (3)
  1. CHLORHEXIDINE GLUCONATE [Suspect]
     Indication: CATHETER PLACEMENT
  2. SELEXID (PIVMECILLINAM HYDROCHLORIDE) [Suspect]
     Indication: URINARY TRACT INFECTION
     Dates: start: 20100525, end: 20100525
  3. LATEX (NO PREF, NAME) [Suspect]

REACTIONS (4)
  - ANAPHYLACTIC REACTION [None]
  - DRUG HYPERSENSITIVITY [None]
  - HELLP SYNDROME [None]
  - LATEX ALLERGY [None]
